FAERS Safety Report 25089163 (Version 1)
Quarter: 2025Q1

REPORT INFORMATION
  Report Type: Spontaneous
  Country: US (occurrence: US)
  Receive Date: 20250318
  Receipt Date: 20250318
  Transmission Date: 20250409
  Serious: Yes (Other)
  Sender: SANOFI AVENTIS
  Company Number: US-SA-2025SA079010

PATIENT
  Sex: Male
  Weight: 99.55 kg

DRUGS (17)
  1. CEREZYME [Suspect]
     Active Substance: IMIGLUCERASE
     Indication: Gaucher^s disease
     Dosage: 4400 IU, QOW
     Route: 042
     Dates: start: 2020, end: 2025
  2. SODIUM CHLORIDE [Concomitant]
     Active Substance: SODIUM CHLORIDE
  3. STERILE WATER [Concomitant]
     Active Substance: WATER
  4. EPINEPHRINE [Concomitant]
     Active Substance: EPINEPHRINE
  5. JARDIANCE [Concomitant]
     Active Substance: EMPAGLIFLOZIN
  6. CRESTOR [Concomitant]
     Active Substance: ROSUVASTATIN CALCIUM
  7. OZEMPIC [Concomitant]
     Active Substance: SEMAGLUTIDE
  8. METFORMIN HYDROCHLORIDE [Concomitant]
     Active Substance: METFORMIN HYDROCHLORIDE
  9. CEQUA [Concomitant]
     Active Substance: CYCLOSPORINE
  10. RAMIPRIL [Concomitant]
     Active Substance: RAMIPRIL
  11. SODIUM CHLORIDE [Concomitant]
     Active Substance: SODIUM CHLORIDE
  12. GLIMEPIRIDE [Concomitant]
     Active Substance: GLIMEPIRIDE
  13. METOPROLOL SUCCINATE [Concomitant]
     Active Substance: METOPROLOL SUCCINATE
  14. FENOFIBRATE [Concomitant]
     Active Substance: FENOFIBRATE
  15. IBUPROFEN [Concomitant]
     Active Substance: IBUPROFEN
  16. BRILINTA [Concomitant]
     Active Substance: TICAGRELOR
  17. ACTOS [Concomitant]
     Active Substance: PIOGLITAZONE HYDROCHLORIDE

REACTIONS (1)
  - Cataract [Unknown]
